FAERS Safety Report 22979192 (Version 2)
Quarter: 2023Q4

REPORT INFORMATION
  Report Type: Report from Study
  Country: FR (occurrence: FR)
  Receive Date: 20230925
  Receipt Date: 20231009
  Transmission Date: 20240109
  Serious: Yes (Other)
  Sender: FDA-Public Use
  Company Number: FR-JAZZ PHARMACEUTICALS-2023-FR-018424

PATIENT
  Age: 38 Year
  Sex: Male
  Weight: 186 kg

DRUGS (6)
  1. CISPLATIN [Suspect]
     Active Substance: CISPLATIN
     Indication: Oesophageal adenocarcinoma
     Dosage: 80 MILLIGRAM/SQ. METER (DAY 1 OF CYCLE)
     Route: 042
     Dates: start: 20230828
  2. CISPLATIN [Suspect]
     Active Substance: CISPLATIN
     Dosage: 150 MILLIGRAM (4 BOTTLES)
     Route: 042
  3. TRASTUZUMAB [Suspect]
     Active Substance: TRASTUZUMAB
     Indication: Oesophageal adenocarcinoma
     Dosage: 1CYCLE:8 MG/KG,SUBSEQUENT CYCLE:6MG/KG,D1 CYCLE
     Route: 042
     Dates: start: 20230828
  4. FLUOROURACIL [Suspect]
     Active Substance: FLUOROURACIL
     Indication: Oesophageal adenocarcinoma
     Dosage: 800 MG/SQ. METER, QD (PER DAY, CONTINUOUS 5 D)
     Route: 042
     Dates: start: 20230828, end: 20230830
  5. OLANZAPINE [Concomitant]
     Active Substance: OLANZAPINE
     Indication: Product used for unknown indication
     Dosage: 5 MILLIGRAM
     Route: 065
     Dates: start: 20230830
  6. SOLU-MEDROL [Concomitant]
     Active Substance: METHYLPREDNISOLONE SODIUM SUCCINATE
     Indication: Product used for unknown indication
     Dosage: 60 MILLIGRAM
     Route: 065
     Dates: start: 20230830

REACTIONS (1)
  - Chest pain [Not Recovered/Not Resolved]

NARRATIVE: CASE EVENT DATE: 20230830
